FAERS Safety Report 24678084 (Version 4)
Quarter: 2025Q3

REPORT INFORMATION
  Report Type: Spontaneous
  Country: KR (occurrence: KR)
  Receive Date: 20241129
  Receipt Date: 20250918
  Transmission Date: 20251020
  Serious: Yes (Hospitalization, Other)
  Sender: CELLTRION
  Company Number: KR-CELLTRION INC.-2024KR028470

PATIENT

DRUGS (95)
  1. VEGZELMA [Suspect]
     Active Substance: BEVACIZUMAB-ADCD
     Indication: Colorectal cancer metastatic
     Dosage: 415 MG, Q2WEEKS (WEIGHT AT THE TIME OF ADMINISTRATION: 83 KG)
     Route: 042
     Dates: start: 20240416
  2. VEGZELMA [Suspect]
     Active Substance: BEVACIZUMAB-ADCD
     Dosage: 415 MG, Q2WEEKS (WEIGHT AT THE TIME OF ADMINISTRATION: 83 KG)
     Route: 042
     Dates: start: 20240502
  3. VEGZELMA [Suspect]
     Active Substance: BEVACIZUMAB-ADCD
     Dosage: 390 MG, Q2WEEKS (WEIGHT AT THE TIME OF ADMINISTRATION: 78 KG)
     Route: 042
     Dates: start: 20240521
  4. VEGZELMA [Suspect]
     Active Substance: BEVACIZUMAB-ADCD
     Dosage: 390 MG, Q2WEEKS (WEIGHT AT THE TIME OF ADMINISTRATION: 78 KG)
     Route: 042
     Dates: start: 20240604
  5. VEGZELMA [Suspect]
     Active Substance: BEVACIZUMAB-ADCD
     Dosage: 390 MG, Q2WEEKS (WEIGHT AT THE TIME OF ADMINISTRATION: 78 KG)
     Route: 042
     Dates: start: 20240619
  6. VEGZELMA [Suspect]
     Active Substance: BEVACIZUMAB-ADCD
     Dosage: 380 MG, Q2WEEKS (WEIGHT AT THE TIME OF ADMINISTRATION: 76 KG)
     Route: 042
     Dates: start: 20240702
  7. VEGZELMA [Suspect]
     Active Substance: BEVACIZUMAB-ADCD
     Dosage: 380 MG, Q2WEEKS (WEIGHT AT THE TIME OF ADMINISTRATION: 76 KG)
     Route: 042
     Dates: start: 20240716
  8. VEGZELMA [Suspect]
     Active Substance: BEVACIZUMAB-ADCD
     Dosage: 360 MG, Q2WEEKS (WEIGHT AT THE TIME OF ADMINISTRATION: 72 KG)
     Route: 042
     Dates: start: 20240806
  9. VEGZELMA [Suspect]
     Active Substance: BEVACIZUMAB-ADCD
     Dosage: 360 MG, Q2WEEKS (WEIGHT AT THE TIME OF ADMINISTRATION: 72 KG)
     Route: 042
     Dates: start: 20240820
  10. VEGZELMA [Suspect]
     Active Substance: BEVACIZUMAB-ADCD
     Dosage: 345 MG, Q2WEEKS (WEIGHT AT THE TIME OF ADMINISTRATION: 69 KG)
     Route: 042
     Dates: start: 20240903
  11. VEGZELMA [Suspect]
     Active Substance: BEVACIZUMAB-ADCD
     Dosage: 345 MG, Q2WEEKS (WEIGHT AT THE TIME OF ADMINISTRATION: 69 KG)
     Route: 042
     Dates: start: 20240924
  12. VEGZELMA [Suspect]
     Active Substance: BEVACIZUMAB-ADCD
     Dosage: 340 MG, Q2WEEKS (WEIGHT AT THE TIME OF ADMINISTRATION: 68KG)
     Route: 042
     Dates: start: 20241024
  13. VEGZELMA [Suspect]
     Active Substance: BEVACIZUMAB-ADCD
     Dosage: 330MG, Q2WEEKS
     Route: 042
     Dates: start: 20241112
  14. VEGZELMA [Suspect]
     Active Substance: BEVACIZUMAB-ADCD
     Dosage: 280 MG, Q2WEEKS
     Route: 042
     Dates: start: 20241204
  15. FLUOROURACIL [Suspect]
     Active Substance: FLUOROURACIL
     Indication: Chemotherapy
     Dates: start: 20240416
  16. IRINOTECAN [Suspect]
     Active Substance: IRINOTECAN
     Indication: Chemotherapy
     Dates: start: 20240416
  17. LEUCOVORIN CALCIUM [Suspect]
     Active Substance: LEUCOVORIN CALCIUM
     Indication: Chemotherapy
     Route: 042
     Dates: start: 20240416
  18. AVASTIN [Suspect]
     Active Substance: BEVACIZUMAB
     Indication: Chemotherapy
     Dates: start: 20241218
  19. ATROPINE SULFATE DAEWON [Concomitant]
     Indication: Gastrointestinal disorder prophylaxis
     Route: 042
     Dates: start: 20240416, end: 20241204
  20. EMEND (FOSAPREPITANT DIMEGLUMINE) [Concomitant]
     Active Substance: FOSAPREPITANT DIMEGLUMINE
     Indication: Gastrointestinal disorder prophylaxis
     Route: 042
     Dates: start: 20240416, end: 20241204
  21. ALOXI [Concomitant]
     Active Substance: PALONOSETRON HYDROCHLORIDE
     Indication: Gastrointestinal disorder prophylaxis
     Route: 042
     Dates: start: 20240416, end: 20241204
  22. JEIL DEXAMETHASONE [Concomitant]
     Indication: Gastrointestinal disorder prophylaxis
     Route: 042
     Dates: start: 20240416, end: 20241230
  23. HUONS HEPARIN SODIUM [Concomitant]
     Indication: Catheter management
     Route: 042
     Dates: start: 20240418, end: 20241231
  24. MACPERAN [METOCLOPRAMIDE] [Concomitant]
     Indication: Gastrointestinal disorder prophylaxis
     Route: 048
     Dates: start: 20240418, end: 20240824
  25. OXYCODONE HYDROCHLORIDE [Concomitant]
     Active Substance: OXYCODONE HYDROCHLORIDE
     Indication: Cancer pain
     Route: 048
     Dates: start: 20240424, end: 20241112
  26. OXYCODONE HYDROCHLORIDE [Concomitant]
     Active Substance: OXYCODONE HYDROCHLORIDE
     Indication: Pain prophylaxis
  27. ACETYLCYSTEINE [Concomitant]
     Active Substance: ACETYLCYSTEINE
     Indication: Renal disorder prophylaxis
     Route: 048
     Dates: start: 20240516, end: 20241217
  28. FENTADUR [Concomitant]
     Indication: Cancer pain
     Dosage: 1 MCG, ONCE A WEEK
     Route: 062
     Dates: start: 20240516
  29. FENTADUR [Concomitant]
     Indication: Pain prophylaxis
  30. TAZOPERAN [Concomitant]
     Indication: Infection prophylaxis
     Route: 042
     Dates: start: 20240516, end: 20241230
  31. DULACKHAN EASY [Concomitant]
     Indication: Constipation
     Route: 048
     Dates: start: 20240516, end: 20241101
  32. HANA PETHIDINE HCL [Concomitant]
     Indication: Cancer pain
     Route: 042
     Dates: start: 20240517, end: 20240517
  33. HANA PETHIDINE HCL [Concomitant]
     Indication: Pain prophylaxis
  34. GASTER [Concomitant]
     Active Substance: FAMOTIDINE
     Indication: Gastrointestinal disorder prophylaxis
     Route: 042
     Dates: start: 20240517
  35. TRANEXAMIC ACID [Concomitant]
     Active Substance: TRANEXAMIC ACID
     Indication: Haemorrhage prophylaxis
     Route: 042
     Dates: start: 20240517, end: 20241026
  36. DULCOLAX-S [Concomitant]
     Indication: Constipation
     Route: 048
     Dates: start: 20240517, end: 20240902
  37. DONGKOO CEFPODOXIME PROXETIL [Concomitant]
     Indication: Haematuria
     Route: 048
     Dates: start: 20240820
  38. MAGNESIUM SULFATE [Concomitant]
     Active Substance: MAGNESIUM SULFATE
     Indication: Electrolyte substitution therapy
     Route: 042
     Dates: start: 20241021, end: 20241024
  39. FOTAGEL [Concomitant]
     Indication: Diarrhoea
     Route: 048
     Dates: start: 20240806, end: 20241112
  40. FEXUCLUE [Concomitant]
     Indication: Gastrointestinal disorder prophylaxis
     Route: 048
     Dates: start: 20240820, end: 20241204
  41. FEBUXOSTAT [Concomitant]
     Active Substance: FEBUXOSTAT
     Indication: Electrolyte substitution therapy
     Route: 048
     Dates: start: 20241031, end: 20241112
  42. TAPOCIN [Concomitant]
     Indication: Infection prophylaxis
     Route: 042
     Dates: start: 20241015, end: 20241022
  43. TAMIPOOL [ASCORBIC ACID;BIOTIN;CYANOCOBALAMIN;DEXPANTHENOL;ERGOCALCIFE [Concomitant]
     Indication: Nutritional supplementation
     Route: 042
     Dates: start: 20241016
  44. LEUCOVORIN CALCIUM [Concomitant]
     Active Substance: LEUCOVORIN CALCIUM
     Indication: Chemotherapy
     Route: 042
     Dates: start: 20240416, end: 20241112
  45. IRINOTECAN [Concomitant]
     Active Substance: IRINOTECAN
     Indication: Chemotherapy
     Route: 042
     Dates: start: 20240820
  46. FLUOROURACIL [Concomitant]
     Active Substance: FLUOROURACIL
     Indication: Chemotherapy
     Route: 042
     Dates: start: 20240820
  47. AMINO ACIDS\DEXTROSE\ELECTROLYTES NOS\SOYBEAN OIL\VITAMINS [Concomitant]
     Active Substance: AMINO ACIDS\DEXTROSE\ELECTROLYTES NOS\SOYBEAN OIL\VITAMINS
     Indication: Nutritional supplementation
     Route: 042
     Dates: start: 20241106, end: 20241111
  48. OLIMEL E [Concomitant]
     Active Substance: AMINO ACIDS\DEXTROSE\ELECTROLYTES NOS\SOYBEAN OIL
     Indication: Nutritional supplementation
     Route: 042
     Dates: start: 20241016, end: 20241226
  49. MOSAPRIDE CITRATE [Concomitant]
     Active Substance: MOSAPRIDE CITRATE
     Indication: Gastrointestinal disorder prophylaxis
     Route: 048
     Dates: start: 20241026, end: 20241130
  50. LOPERAMIDE HYDROCHLORIDE [Concomitant]
     Active Substance: LOPERAMIDE HYDROCHLORIDE
     Indication: Diarrhoea
     Route: 048
     Dates: start: 20241108, end: 20241116
  51. NORZYME [Concomitant]
     Indication: Gastrointestinal disorder prophylaxis
     Route: 048
     Dates: start: 20241110, end: 20241113
  52. DAIHAN LIDOCAINE HCL [Concomitant]
     Indication: Anaesthesia
     Route: 042
     Dates: start: 20241023, end: 20241231
  53. DAIHAN ISOTONIC SODIUM CHLORIDE [Concomitant]
     Indication: Medication dilution
     Route: 042
     Dates: start: 20240416, end: 20241204
  54. DONG A GASTER [Concomitant]
     Indication: Gastrointestinal disorder prophylaxis
     Route: 048
     Dates: start: 20241103, end: 20241112
  55. PREDNICARBATE [Interacting]
     Active Substance: PREDNICARBATE
     Indication: Prophylaxis
     Route: 061
     Dates: start: 20240604, end: 20240604
  56. REMIVA [Concomitant]
     Indication: Anaesthesia
     Route: 042
     Dates: start: 20241023, end: 20241023
  57. ROCARON [Concomitant]
     Indication: Anaesthesia
     Route: 042
     Dates: start: 20241023, end: 20241231
  58. MACPERAN [METOCLOPRAMIDE HYDROCHLORIDE] [Concomitant]
     Indication: Gastrointestinal disorder prophylaxis
     Route: 042
     Dates: start: 20241031, end: 20241228
  59. MACPERAN [METOCLOPRAMIDE HYDROCHLORIDE] [Concomitant]
     Indication: Ileus
     Route: 042
     Dates: start: 20241106, end: 20241114
  60. YUHAN MEROPEN [Concomitant]
     Indication: Infection prophylaxis
     Route: 042
     Dates: start: 20241015, end: 20241017
  61. BESZYME [Concomitant]
     Indication: Gastrointestinal disorder prophylaxis
     Route: 048
     Dates: start: 20241024, end: 20241024
  62. IBUPROFEN [Concomitant]
     Active Substance: IBUPROFEN
     Indication: Pain
     Route: 048
     Dates: start: 20240924, end: 20241001
  63. BC MORPHINE SULFATE [Concomitant]
     Indication: Pain
     Route: 042
     Dates: start: 20240516
  64. ACETPHEN PREMIX [Concomitant]
     Indication: Pain
     Route: 042
     Dates: start: 20241023, end: 20241023
  65. OXYCODONE HYDROCHLORIDE [Concomitant]
     Active Substance: OXYCODONE HYDROCHLORIDE
     Indication: Pain
     Route: 048
     Dates: start: 20241026, end: 20241126
  66. IOBRIX [Concomitant]
     Indication: Scan with contrast
     Route: 042
     Dates: start: 20241023, end: 20241023
  67. IOBRIX [Concomitant]
     Indication: Scan with contrast
     Route: 042
     Dates: start: 20240520, end: 20240520
  68. IOBRIX [Concomitant]
     Indication: Scan with contrast
     Route: 042
     Dates: start: 20240516, end: 20241015
  69. INNO.N 0.9% SODIUM CHLORIDE [Concomitant]
     Indication: Medication dilution
     Route: 042
     Dates: start: 20240416
  70. INNO.N 5% DEXTROSE [Concomitant]
     Indication: Medication dilution
     Route: 042
     Dates: start: 20240416
  71. INNO.N 0.9% SODIUM CHLORIDE [Concomitant]
     Indication: Dehydration
     Route: 042
     Dates: start: 20240517, end: 20241023
  72. INNO.N 0.9% SODIUM CHLORIDE [Concomitant]
     Indication: Dehydration
     Route: 042
     Dates: start: 20240516, end: 20240924
  73. INNO.N 5% DEXTROSE [Concomitant]
     Indication: Dehydration
     Route: 042
     Dates: start: 20240416, end: 20241025
  74. INSTILLAGEL [Concomitant]
     Active Substance: CHLORHEXIDINE GLUCONATE\LIDOCAINE HYDROCHLORIDE
     Indication: Catheter placement
     Route: 061
     Dates: start: 20240806, end: 20240823
  75. JEIL LIDOCAINE [Concomitant]
     Indication: Nephrostomy
     Route: 030
     Dates: start: 20240516, end: 20241015
  76. JW 0.45% SODIUM CHLORIDE [Concomitant]
     Indication: Dehydration
     Route: 042
     Dates: start: 20241018, end: 20241024
  77. JW 0.45% SODIUM CHLORIDE [Concomitant]
     Indication: Dehydration
     Route: 042
     Dates: start: 20241016, end: 20241017
  78. JW 0.45% SODIUM CHLORIDE [Concomitant]
     Route: 042
     Dates: start: 20250102
  79. CALCIUM POLYSTYRENE SULFONATE [Concomitant]
     Active Substance: CALCIUM POLYSTYRENE SULFONATE
     Indication: Electrolyte substitution therapy
     Route: 048
     Dates: start: 20241015, end: 20241206
  80. TRAMADOL HYDROCHLORIDE [Concomitant]
     Active Substance: TRAMADOL HYDROCHLORIDE
     Indication: Pain
     Route: 042
     Dates: start: 20240520, end: 20240520
  81. TRISONE KIT [Concomitant]
     Indication: Infection prophylaxis
     Route: 042
     Dates: start: 20241022, end: 20241025
  82. PENIRAMIN [Concomitant]
     Indication: Prophylaxis
     Route: 042
     Dates: start: 20240516, end: 20241227
  83. FENTADUR [Concomitant]
     Indication: Pain
     Dosage: 50 MCG/H, ONCE A WEEK
     Route: 062
     Dates: start: 20240820, end: 20250101
  84. FRESOFOL MCT [Concomitant]
     Indication: Anaesthesia
     Route: 042
     Dates: start: 20241023, end: 20241023
  85. PROFA [Concomitant]
     Indication: Pain
     Route: 042
     Dates: start: 20241015, end: 20241015
  86. HANA FENTANYL CITRATE [Concomitant]
     Indication: Anaesthesia
     Route: 042
     Dates: start: 20241023, end: 20241231
  87. HANA FENTANYL CITRATE [Concomitant]
     Indication: Analgesic therapy
     Route: 042
     Dates: start: 20241231, end: 20241231
  88. FENTANYL CITRATE [Concomitant]
     Active Substance: FENTANYL CITRATE
     Indication: Analgesic therapy
     Route: 042
     Dates: start: 20241031, end: 20241031
  89. BANAN [Concomitant]
     Active Substance: CEFPODOXIME PROXETIL
     Indication: Infection prophylaxis
     Route: 048
     Dates: start: 20240820, end: 20241112
  90. RAMOSETRON HYDROCHLORIDE [Concomitant]
     Active Substance: RAMOSETRON HYDROCHLORIDE
     Indication: Premedication
     Route: 042
     Dates: start: 20241231, end: 20241231
  91. ACETYLCYSTEINE [Concomitant]
     Active Substance: ACETYLCYSTEINE
     Route: 042
     Dates: start: 20241231, end: 20241231
  92. NAXODOL [CARISOPRODOL;NAPROXEN] [Concomitant]
     Route: 042
     Dates: start: 20250102, end: 20250102
  93. MEROPENEM [Concomitant]
     Active Substance: MEROPENEM
     Indication: Infection prophylaxis
     Route: 042
     Dates: start: 20241230
  94. LANSOPRAZOLE [Concomitant]
     Active Substance: LANSOPRAZOLE
     Route: 048
     Dates: start: 20241207, end: 20241230
  95. PROPACETAMOL HYDROCHLORIDE [Concomitant]
     Active Substance: PROPACETAMOL HYDROCHLORIDE
     Indication: Analgesic therapy
     Route: 042
     Dates: start: 20250101

REACTIONS (3)
  - Acute kidney injury [Recovered/Resolved]
  - Hydronephrosis [Recovered/Resolved]
  - Ileus [Recovered/Resolved]

NARRATIVE: CASE EVENT DATE: 20240516
